FAERS Safety Report 4401680-7 (Version None)
Quarter: 2004Q3

REPORT INFORMATION
  Report Type: 
  Country: None (occurrence: None)
  Receive Date: 20040719
  Receipt Date: 20040512
  Transmission Date: 20050211
  Serious: No
  Sender: FDA-Public Use
  Company Number: NL-GLAXOSMITHKLINE-B0332766A

PATIENT
  Age: 63 Year
  Sex: Female
  Weight: 82 kg

DRUGS (1)
  1. ATOVAQUONE + PROGUANIL HYDROCHLORIDE [Suspect]
     Indication: MALARIA PROPHYLAXIS
     Dosage: 1TAB PER DAY
     Route: 048
     Dates: start: 20040114

REACTIONS (3)
  - CHEST DISCOMFORT [None]
  - FATIGUE [None]
  - OEDEMA [None]
